FAERS Safety Report 6139155-X (Version None)
Quarter: 2009Q2

REPORT INFORMATION
  Report Type: 
  Country: None (occurrence: None)
  Receive Date: 20090401
  Receipt Date: 20090107
  Transmission Date: 20091009
  Serious: Yes (Other)
  Sender: FDA-Public Use
  Company Number: IT-PFIZER INC-2008053013

PATIENT

DRUGS (2)
  1. CABASER [Suspect]
     Indication: MOTOR DYSFUNCTION
     Dosage: 1 MG, 2X/DAY
     Dates: start: 20050101
  2. CABASER [Suspect]
     Indication: TREMOR

REACTIONS (3)
  - PATHOLOGICAL GAMBLING [None]
  - SUICIDAL IDEATION [None]
  - VISUAL IMPAIRMENT [None]
